FAERS Safety Report 5895181-7 (Version None)
Quarter: 2008Q3

REPORT INFORMATION
  Report Type: 
  Country: None (occurrence: None)
  Receive Date: 20080924
  Receipt Date: 20080912
  Transmission Date: 20090109
  Serious: Yes (Other)
  Sender: FDA-Public Use
  Company Number: JP-PFIZER INC-2008077527

PATIENT
  Weight: 17 kg

DRUGS (2)
  1. REVATIO [Suspect]
     Indication: PULMONARY HYPERTENSION
     Dosage: DAILY DOSE:15MG
     Route: 048
     Dates: start: 20080801
  2. TRACLEER [Concomitant]

REACTIONS (4)
  - ARRHYTHMIA [None]
  - ASTHENIA [None]
  - MALAISE [None]
  - VOMITING [None]
